FAERS Safety Report 15566955 (Version 1)
Quarter: 2018Q4

REPORT INFORMATION
  Report Type: Spontaneous
  Country: GB (occurrence: BE)
  Receive Date: 20181030
  Receipt Date: 20181030
  Transmission Date: 20190205
  Serious: Yes (Other)
  Sender: FDA-Public Use
  Company Number: BE-FRESENIUS KABI-FK201811138

PATIENT
  Age: 34 Year
  Sex: Female

DRUGS (6)
  1. ULTIVA [Suspect]
     Active Substance: REMIFENTANIL HYDROCHLORIDE
     Indication: INDUCTION OF ANAESTHESIA
     Route: 042
     Dates: start: 2018, end: 2018
  2. MIDAZOLAM [Suspect]
     Active Substance: MIDAZOLAM HYDROCHLORIDE
     Indication: INDUCTION OF ANAESTHESIA
     Dosage: 3 MG
     Route: 042
     Dates: start: 2018, end: 2018
  3. LINISOL [Suspect]
     Active Substance: LIDOCAINE HYDROCHLORIDE
     Indication: INDUCTION OF ANAESTHESIA
     Dosage: 100 MG
     Route: 042
  4. VENTOLIN [Concomitant]
     Active Substance: ALBUTEROL SULFATE
     Indication: PRODUCT USED FOR UNKNOWN INDICATION
     Dosage: UNK, IF NEEDED
     Route: 065
  5. ESMERON [Suspect]
     Active Substance: ROCURONIUM BROMIDE
     Indication: INDUCTION OF ANAESTHESIA
     Dosage: 40 MG
     Route: 042
     Dates: start: 2018, end: 2018
  6. PROPOFOL FRESENIUS (NOT SPECIFIED) [Suspect]
     Active Substance: PROPOFOL
     Indication: INDUCTION OF ANAESTHESIA
     Route: 042
     Dates: start: 2018, end: 2018

REACTIONS (3)
  - Type IV hypersensitivity reaction [Recovering/Resolving]
  - Anaphylactic reaction [Recovering/Resolving]
  - Type III immune complex mediated reaction [Recovering/Resolving]

NARRATIVE: CASE EVENT DATE: 2018
